FAERS Safety Report 6379151-0 (Version None)
Quarter: 2009Q3

REPORT INFORMATION
  Report Type: 
  Country: None (occurrence: None)
  Receive Date: 20090923
  Receipt Date: 20090923
  Transmission Date: 20100115
  Serious: Yes (Other)
  Sender: FDA-Public Use
  Company Number: None

PATIENT
  Sex: Female
  Weight: 56.246 kg

DRUGS (2)
  1. METOCLOPRAMIDE [Suspect]
     Indication: IMPAIRED GASTRIC EMPTYING
     Dosage: METOCLOPRIMIDE 10MG QID PO
     Route: 048
     Dates: start: 20070807, end: 20090102
  2. LEVOTHYROXINE SODIUM [Concomitant]

REACTIONS (5)
  - DRUG ERUPTION [None]
  - HYPERTENSION [None]
  - PRURITUS [None]
  - RASH GENERALISED [None]
  - SCAR [None]
